FAERS Safety Report 14181520 (Version 1)
Quarter: 2017Q4

REPORT INFORMATION
  Report Type: Spontaneous
  Country: US (occurrence: US)
  Receive Date: 20171111
  Receipt Date: 20171111
  Transmission Date: 20180321
  Serious: Yes (Hospitalization)
  Sender: FDA-Public Use
  Company Number: None

PATIENT
  Age: 58 Year
  Sex: Male
  Weight: 111.6 kg

DRUGS (3)
  1. PROTONIX [Concomitant]
     Active Substance: PANTOPRAZOLE SODIUM
  2. MULTI VITAMIN [Concomitant]
     Active Substance: VITAMINS
  3. DICLOFENAC SODIUM EC 75MG [Suspect]
     Active Substance: DICLOFENAC SODIUM
     Indication: BURSITIS
     Dosage: ?          QUANTITY:1 TABLET(S);?
     Route: 048
     Dates: start: 20171024, end: 20171104

REACTIONS (9)
  - Fall [None]
  - Disorientation [None]
  - Dizziness [None]
  - Dyskinesia [None]
  - Eye movement disorder [None]
  - Tremor [None]
  - Balance disorder [None]
  - Seizure [None]
  - Urinary incontinence [None]

NARRATIVE: CASE EVENT DATE: 20171029
